FAERS Safety Report 12679669 (Version 3)
Quarter: 2017Q1

REPORT INFORMATION
  Report Type: Spontaneous
  Country: US (occurrence: US)
  Receive Date: 20160824
  Receipt Date: 20170119
  Transmission Date: 20170428
  Serious: No
  Sender: FDA-Public Use
  Company Number: US-PFIZER INC-2016396435

PATIENT
  Age: 55 Year
  Sex: Male
  Weight: 68.27 kg

DRUGS (5)
  1. LYRICA [Suspect]
     Active Substance: PREGABALIN
     Indication: ABDOMINAL PAIN UPPER
     Dosage: 75 MG, 2X/DAY
     Route: 048
     Dates: start: 201601
  2. LYRICA [Suspect]
     Active Substance: PREGABALIN
     Dosage: UNK
     Route: 048
     Dates: start: 201605
  3. OXYCONTIN [Concomitant]
     Active Substance: OXYCODONE HYDROCHLORIDE
     Indication: ABDOMINAL PAIN UPPER
     Dosage: 80 MG, 2X/DAY
     Dates: start: 201306
  4. LYRICA [Suspect]
     Active Substance: PREGABALIN
     Dosage: 75MG, 2X/DAY (ONE CAPSULE IN THE MORNING AND ONE CAPSULE IN THE EVENING)
     Route: 048
     Dates: start: 201607, end: 20160731
  5. LYRICA [Suspect]
     Active Substance: PREGABALIN
     Dosage: 75 MG, 2X/DAY
     Route: 048
     Dates: start: 201608

REACTIONS (1)
  - Drug ineffective for unapproved indication [Not Recovered/Not Resolved]

NARRATIVE: CASE EVENT DATE: 201606
